FAERS Safety Report 23674037 (Version 1)
Quarter: 2024Q1

REPORT INFORMATION
  Report Type: Spontaneous
  Country: US (occurrence: US)
  Receive Date: 20240326
  Receipt Date: 20240326
  Transmission Date: 20240409
  Serious: No
  Sender: FDA-Public Use
  Company Number: US-INFO-20240064

PATIENT
  Age: 61 Year
  Sex: Male

DRUGS (1)
  1. LEVOFLOXACIN [Suspect]
     Active Substance: LEVOFLOXACIN
     Indication: Prophylaxis
     Dosage: EXPIRY DATE: SEP-2026 ()
     Route: 042

REACTIONS (3)
  - Pruritus [Unknown]
  - Erythema [Unknown]
  - Injection site rash [Unknown]
